FAERS Safety Report 12067075 (Version 4)
Quarter: 2016Q1

REPORT INFORMATION
  Report Type: Spontaneous
  Country: AU (occurrence: AU)
  Receive Date: 20160211
  Receipt Date: 20160316
  Transmission Date: 20160526
  Serious: Yes (Other)
  Sender: FDA-Public Use
  Company Number: PHHY2016AU018166

PATIENT
  Age: 23 Year
  Sex: Female

DRUGS (1)
  1. CICLOSPORIN [Suspect]
     Active Substance: CYCLOSPORINE
     Indication: BONE MARROW TRANSPLANT
     Dosage: 150 MG, BID
     Route: 065

REACTIONS (12)
  - Graft versus host disease in gastrointestinal tract [Unknown]
  - Detachment of retinal pigment epithelium [Recovered/Resolved]
  - Corneal lesion [Recovered/Resolved]
  - Graft versus host disease in skin [Unknown]
  - Vision blurred [Recovering/Resolving]
  - Metamorphopsia [Unknown]
  - Rash [Unknown]
  - Retinal haemorrhage [Recovered/Resolved]
  - Subretinal fluid [Recovered/Resolved]
  - Diarrhoea [Unknown]
  - Chorioretinopathy [Recovering/Resolving]
  - Retinal detachment [Recovered/Resolved]
